FAERS Safety Report 9944088 (Version 1)
Quarter: 2014Q1

REPORT INFORMATION
  Report Type: Report from Study
  Country: IN (occurrence: IN)
  Receive Date: 20140303
  Receipt Date: 20140303
  Transmission Date: 20141002
  Serious: Yes (Death, Hospitalization)
  Sender: FDA-Public Use
  Company Number: PHHY2014IN025259

PATIENT
  Age: 69 Year
  Sex: Male

DRUGS (3)
  1. ACLASTA [Suspect]
     Indication: OSTEOPOROSIS
     Dosage: 5 MG/100ML/YEAR
     Route: 042
     Dates: start: 20120303
  2. ACLASTA [Suspect]
     Dosage: 5 MG/100ML/YEAR
     Route: 042
     Dates: start: 20130303
  3. INSULIN [Concomitant]
     Indication: DIABETES MELLITUS
     Dosage: 1 DF, ONCE/SINGLE
     Route: 042

REACTIONS (4)
  - Death [Fatal]
  - Multi-organ failure [Recovering/Resolving]
  - Coma [Recovering/Resolving]
  - Dyspnoea [Recovering/Resolving]
